FAERS Safety Report 8963703 (Version 1)
Quarter: 2012Q4

REPORT INFORMATION
  Report Type: 
  Country: GB (occurrence: GB)
  Receive Date: 20121214
  Receipt Date: 20121214
  Transmission Date: 20130627
  Serious: Yes (Hospitalization, Other)
  Sender: FDA-Public Use
  Company Number: GB-PFIZER INC-GBWYE398804FEB05

PATIENT
  Age: 38 Year
  Sex: Female

DRUGS (3)
  1. IBUPROFEN [Suspect]
     Indication: PAIN
     Dosage: 1.2-1.6g  daily
     Route: 048
     Dates: start: 20050117, end: 20050124
  2. METHOTREXATE SODIUM [Interacting]
     Indication: PAIN
     Dosage: 10 mg, weekly
     Route: 048
     Dates: start: 2000, end: 20050124
  3. LOESTRIN [Concomitant]
     Dosage: 1 DF, 1x/day

REACTIONS (6)
  - Drug interaction [Unknown]
  - Hepatotoxicity [Not Recovered/Not Resolved]
  - White blood cell count decreased [Not Recovered/Not Resolved]
  - Platelet count decreased [Recovering/Resolving]
  - Infection in an immunocompromised host [Not Recovered/Not Resolved]
  - Hepatic enzyme increased [Not Recovered/Not Resolved]
